FAERS Safety Report 7656544-2 (Version None)
Quarter: 2011Q3

REPORT INFORMATION
  Report Type: 
  Country: None (occurrence: None)
  Receive Date: 20110804
  Receipt Date: 20101229
  Transmission Date: 20111222
  Serious: No
  Sender: FDA-Public Use
  Company Number: US-BAUSCH-2010BL007367

PATIENT
  Age: 51 Year
  Sex: Female

DRUGS (3)
  1. OPCON-A [Suspect]
     Indication: VISION BLURRED
     Route: 047
     Dates: start: 20090101
  2. OPCON-A [Suspect]
     Indication: FOREIGN BODY SENSATION IN EYES
     Route: 047
     Dates: start: 20090101
  3. OPCON-A [Suspect]
     Indication: OCULAR HYPERAEMIA
     Route: 047
     Dates: start: 20090101

REACTIONS (3)
  - INSTILLATION SITE PAIN [None]
  - ERYTHEMA [None]
  - LACRIMATION INCREASED [None]
